FAERS Safety Report 8251930-4 (Version None)
Quarter: 2012Q2

REPORT INFORMATION
  Report Type: 
  Country: None (occurrence: None)
  Receive Date: 20120402
  Receipt Date: 20120323
  Transmission Date: 20120825
  Serious: Yes (Hospitalization)
  Sender: FDA-Public Use
  Company Number: JP-AMGEN-JPNCT2012015221

PATIENT
  Age: 70 Year
  Sex: Female
  Weight: 41 kg

DRUGS (24)
  1. FLUOROURACIL [Suspect]
     Route: 040
     Dates: start: 20110221, end: 20110513
  2. PANITUMUMAB [Suspect]
     Dosage: 6 MG/KG, Q2WK
     Route: 041
     Dates: start: 20101125, end: 20101125
  3. PANITUMUMAB [Suspect]
     Dosage: 6 MG/KG, Q2WK
     Route: 041
     Dates: start: 20110414, end: 20110414
  4. PANITUMUMAB [Suspect]
     Dosage: 6 MG/KG, Q2WK
     Route: 041
     Dates: start: 20110513, end: 20110513
  5. OXALIPLATIN [Suspect]
     Indication: COLORECTAL CANCER
     Route: 041
     Dates: start: 20101028, end: 20110124
  6. MAGNESIUM OXIDE [Concomitant]
     Dosage: UNK
     Route: 048
  7. PANITUMUMAB [Suspect]
     Dosage: 6 MG/KG, Q2WK
     Route: 041
     Dates: start: 20101227, end: 20101227
  8. LEUCOVORIN CALCIUM [Suspect]
     Indication: COLORECTAL CANCER
     Route: 041
     Dates: start: 20101028, end: 20110124
  9. MOTILIUM [Concomitant]
     Dosage: UNK
     Route: 048
  10. ZOFRAN [Concomitant]
     Dosage: UNK
     Route: 048
  11. ANTIHISTAMINES [Concomitant]
     Indication: PROPHYLAXIS
     Dosage: UNK
     Route: 065
  12. IRINOTECAN HCL [Concomitant]
     Indication: COLORECTAL CANCER
     Route: 041
     Dates: start: 20110221, end: 20110513
  13. LEUCOVORIN CALCIUM [Suspect]
     Route: 041
     Dates: start: 20110221, end: 20110513
  14. MYSER [Concomitant]
     Dosage: UNK
     Route: 062
  15. PANITUMUMAB [Suspect]
     Dosage: 6 MG/KG, Q2WK
     Route: 041
     Dates: start: 20110221, end: 20110221
  16. PANITUMUMAB [Suspect]
     Dosage: 6 MG/KG, Q2WK
     Route: 041
     Dates: start: 20110318, end: 20110318
  17. FLUOROURACIL [Suspect]
     Route: 041
     Dates: start: 20101028, end: 20110124
  18. PANITUMUMAB [Suspect]
     Indication: COLORECTAL CANCER
     Dosage: 6 MG/KG, Q2WK
     Route: 041
     Dates: start: 20101028, end: 20101028
  19. FLUOROURACIL [Suspect]
     Indication: COLORECTAL CANCER
     Route: 040
     Dates: start: 20101028, end: 20110124
  20. CORTICOSTEROIDS [Concomitant]
     Indication: PROPHYLAXIS
     Dosage: UNK
     Route: 065
  21. HIRUDOID [Concomitant]
     Dosage: UNK
     Route: 062
  22. PANITUMUMAB [Suspect]
     Dosage: 6 MG/KG, Q2WK
     Route: 041
     Dates: start: 20110124, end: 20110124
  23. FLUOROURACIL [Suspect]
     Route: 041
     Dates: start: 20110221, end: 20110513
  24. LOCOID [Concomitant]
     Dosage: UNK
     Route: 062

REACTIONS (3)
  - NEUTROPHIL COUNT DECREASED [None]
  - PRURITUS GENERALISED [None]
  - DRY SKIN [None]
